FAERS Safety Report 4638829-7 (Version None)
Quarter: 2005Q2

REPORT INFORMATION
  Report Type: 
  Country: None (occurrence: None)
  Receive Date: 20050418
  Receipt Date: 20050418
  Transmission Date: 20051028
  Serious: No
  Sender: FDA-Public Use
  Company Number: None

PATIENT
  Age: 79 Year
  Sex: Female
  Weight: 34.9 kg

DRUGS (25)
  1. ERBITUX [Suspect]
     Indication: HEPATIC NEOPLASM MALIGNANT
     Dosage: 760MG ONE-TIME DOSE INTRAVENOUS
     Route: 042
     Dates: start: 20050408, end: 20050408
  2. ERBITUX [Suspect]
     Indication: METASTASIS
     Dosage: 760MG ONE-TIME DOSE INTRAVENOUS
     Route: 042
     Dates: start: 20050408, end: 20050408
  3. PAXIL [Concomitant]
  4. NYSTATIN POWDER TOPICAL [Concomitant]
  5. NYSTATIN [Concomitant]
  6. METOPROLOL TARTRATE [Concomitant]
  7. METOCLOPRAMIDE [Concomitant]
  8. MAGOX [Concomitant]
  9. HUMULIN R [Concomitant]
  10. LANTUS [Concomitant]
  11. NORVASC [Concomitant]
  12. CLONIDINE [Concomitant]
  13. AVAPRO [Concomitant]
  14. XELODA [Concomitant]
  15. ELOXATIN [Concomitant]
  16. ZINC SULF [Concomitant]
  17. M.V.I. [Concomitant]
  18. VIT C [Concomitant]
  19. POTASSIUM CHLORIDE [Concomitant]
  20. KYTRIL [Concomitant]
  21. TYLENOL (CAPLET) [Concomitant]
  22. PHENERGAN [Concomitant]
  23. DIFLUCAN [Concomitant]
  24. RIFAMPIN [Concomitant]
  25. COTRIM [Concomitant]

REACTIONS (8)
  - BLOOD PRESSURE DECREASED [None]
  - DEPRESSED LEVEL OF CONSCIOUSNESS [None]
  - DYSPNOEA [None]
  - HYPERHIDROSIS [None]
  - PROLONGED EXPIRATION [None]
  - RESPIRATORY RATE INCREASED [None]
  - STARING [None]
  - WHEEZING [None]
